FAERS Safety Report 7778054-4 (Version None)
Quarter: 2011Q3

REPORT INFORMATION
  Report Type: 
  Country: None (occurrence: None)
  Receive Date: 20110926
  Receipt Date: 20110802
  Transmission Date: 20111222
  Serious: Yes (Other)
  Sender: FDA-Public Use
  Company Number: FR-ELI_LILLY_AND_COMPANY-FR201105006319

PATIENT
  Age: 45 Year
  Sex: Female
  Weight: 102 kg

DRUGS (6)
  1. LANTUS [Concomitant]
     Indication: DIABETES MELLITUS
     Dosage: 50 IU, UNK
     Route: 058
     Dates: start: 20100312
  2. METFORMIN HCL [Concomitant]
     Indication: DIABETES MELLITUS
     Dosage: 3000 MG, QD
     Route: 048
     Dates: start: 20050819
  3. ZOPICLONE [Concomitant]
     Indication: INSOMNIA
     Dosage: UNK UNK, QD
     Route: 048
     Dates: start: 20050819
  4. CYMBALTA [Suspect]
     Indication: DEPRESSION
     Dosage: 60 MG, BID
     Route: 048
     Dates: start: 20101001, end: 20110401
  5. GLIMEPIRIDE [Concomitant]
     Dosage: UNK
     Route: 048
     Dates: start: 20110323
  6. APROVEL [Concomitant]
     Indication: HYPERTENSION
     Dosage: 75 MG, QD
     Route: 048
     Dates: start: 20100322

REACTIONS (1)
  - BRIEF PSYCHOTIC DISORDER WITH MARKED STRESSORS [None]
